FAERS Safety Report 7576283-6 (Version None)
Quarter: 2011Q2

REPORT INFORMATION
  Report Type: 
  Country: None (occurrence: None)
  Receive Date: 20110628
  Receipt Date: 20101208
  Transmission Date: 20111010
  Serious: Yes (Hospitalization, Other)
  Sender: FDA-Public Use
  Company Number: US-BAYER-201022911NA

PATIENT
  Age: 29 Year
  Sex: Female
  Weight: 99 kg

DRUGS (12)
  1. YAZ [Suspect]
     Indication: PREMENSTRUAL SYNDROME
  2. FORTAMET [Concomitant]
     Indication: POLYCYSTIC OVARIES
     Dosage: 1000 MG, QD
     Dates: start: 20080401, end: 20080601
  3. NEURONTIN [Concomitant]
     Indication: MIGRAINE
     Dosage: UNK UNK, QD
     Dates: start: 20080601
  4. ACETAMINOPHEN [Concomitant]
     Indication: HEADACHE
     Dosage: UNK UNK, PRN
     Dates: start: 20080601
  5. OTHER ANALGESICS AND ANTIPYRETICS [Concomitant]
     Indication: HEADACHE
     Dosage: UNK
     Dates: start: 20080601
  6. YAZ [Suspect]
  7. NASONEX [Concomitant]
     Indication: MULTIPLE ALLERGIES
     Dosage: 50 UNK, UNK
     Dates: start: 20080601
  8. ACIPHEX [Concomitant]
     Indication: GASTROOESOPHAGEAL REFLUX DISEASE
     Dosage: 20 MG, QD
     Dates: start: 20070901, end: 20081001
  9. YAZ [Suspect]
     Indication: POLYCYSTIC OVARIES
     Route: 048
     Dates: start: 20080201, end: 20080601
  10. NEXIUM [Concomitant]
  11. SERTRALINE HYDROCHLORIDE [Concomitant]
     Indication: DEPRESSION
     Dosage: 150 MG, QD
     Dates: start: 20060601
  12. CLARITIN [Concomitant]

REACTIONS (9)
  - MUSCLE SPASMS [None]
  - CHOLECYSTITIS CHRONIC [None]
  - ABDOMINAL PAIN [None]
  - DYSPEPSIA [None]
  - PAIN [None]
  - DIARRHOEA [None]
  - THROMBOSIS [None]
  - DEEP VEIN THROMBOSIS [None]
  - CHOLELITHIASIS [None]
